FAERS Safety Report 11791080 (Version 4)
Quarter: 2016Q1

REPORT INFORMATION
  Report Type: Spontaneous
  Country: US (occurrence: US)
  Receive Date: 20151201
  Receipt Date: 20160107
  Transmission Date: 20160525
  Serious: No
  Sender: FDA-Public Use
  Company Number: US-GLAXOSMITHKLINE-US2015167369

PATIENT
  Age: 32 Year
  Sex: Female

DRUGS (1)
  1. ALLI [Suspect]
     Active Substance: ORLISTAT
     Indication: WEIGHT LOSS DIET
     Dosage: 120 COUNT, UNK
     Dates: end: 20151123

REACTIONS (3)
  - Rectal discharge [Recovered/Resolved]
  - Product quality issue [Unknown]
  - Drug ineffective [Unknown]
